FAERS Safety Report 15465961 (Version 1)
Quarter: 2018Q4

REPORT INFORMATION
  Report Type: Spontaneous
  Country: FR (occurrence: FR)
  Receive Date: 20181004
  Receipt Date: 20181004
  Transmission Date: 20190204
  Serious: Yes (Hospitalization)
  Sender: FDA-Public Use
  Company Number: FR-GLAXOSMITHKLINE-FR2018179348

PATIENT
  Age: 52 Year
  Sex: Female

DRUGS (1)
  1. CEFUROXIME AXETIL. [Suspect]
     Active Substance: CEFUROXIME AXETIL
     Indication: BRONCHITIS
     Dosage: IN TOTAL
     Route: 048
     Dates: start: 1996, end: 1996

REACTIONS (2)
  - Urticaria [Recovered/Resolved]
  - Oedema [Recovered/Resolved]

NARRATIVE: CASE EVENT DATE: 1996
